FAERS Safety Report 21194354 (Version 1)
Quarter: 2022Q3

REPORT INFORMATION
  Report Type: Spontaneous
  Country: US (occurrence: None)
  Receive Date: 20220809
  Receipt Date: 20220809
  Transmission Date: 20221027
  Serious: Yes (Other)
  Sender: FDA-Public Use
  Company Number: None

PATIENT
  Age: 63 Year
  Sex: Male
  Weight: 118.8 kg

DRUGS (1)
  1. MAGNESIUM CITRATE [Suspect]
     Active Substance: MAGNESIUM CITRATE
     Indication: Bowel preparation
     Dosage: FREQUENCY : ONCE;?
     Route: 048
     Dates: start: 20220726, end: 20220726

REACTIONS (1)
  - Campylobacter gastroenteritis [None]

NARRATIVE: CASE EVENT DATE: 20220803
